FAERS Safety Report 11716126 (Version 3)
Quarter: 2016Q1

REPORT INFORMATION
  Report Type: Report from Study
  Country: US (occurrence: US)
  Receive Date: 20151109
  Receipt Date: 20160119
  Transmission Date: 20160525
  Serious: Yes (Hospitalization, Other)
  Sender: FDA-Public Use
  Company Number: US-JNJFOC-20151107478

PATIENT
  Sex: Male

DRUGS (25)
  1. IMBRUVICA [Suspect]
     Active Substance: IBRUTINIB
     Indication: PRODUCT USED FOR UNKNOWN INDICATION
     Route: 048
     Dates: start: 201511, end: 2015
  2. IMBRUVICA [Suspect]
     Active Substance: IBRUTINIB
     Indication: PRODUCT USED FOR UNKNOWN INDICATION
     Route: 048
     Dates: start: 201511, end: 2015
  3. IPRATROPIUM BROMIDE W/SALBUTAMOL SULFATE [Concomitant]
  4. KCL [Concomitant]
     Active Substance: POTASSIUM CHLORIDE
  5. IMBRUVICA [Suspect]
     Active Substance: IBRUTINIB
     Indication: PRODUCT USED FOR UNKNOWN INDICATION
     Route: 048
     Dates: start: 2015, end: 2015
  6. IMBRUVICA [Suspect]
     Active Substance: IBRUTINIB
     Indication: PRODUCT USED FOR UNKNOWN INDICATION
     Route: 048
     Dates: start: 20151205
  7. LASIX [Suspect]
     Active Substance: FUROSEMIDE
     Indication: PRODUCT USED FOR UNKNOWN INDICATION
  8. OMEPRAZOLE. [Concomitant]
     Active Substance: OMEPRAZOLE
  9. MULTI VITAMIN [Concomitant]
     Active Substance: VITAMINS
  10. VITAMINA B12 [Concomitant]
  11. RITUXAN [Suspect]
     Active Substance: RITUXIMAB
     Indication: PRODUCT USED FOR UNKNOWN INDICATION
  12. AMIODARONE [Concomitant]
     Active Substance: AMIODARONE
  13. CALCIUM [Concomitant]
     Active Substance: CALCIUM
  14. VITAMIN D3 [Concomitant]
     Active Substance: CHOLECALCIFEROL
  15. IMBRUVICA [Suspect]
     Active Substance: IBRUTINIB
     Indication: THERAPY NAIVE
     Route: 048
     Dates: start: 201511, end: 2015
  16. ACETYLSALICYLIC ACID [Concomitant]
     Active Substance: ASPIRIN
  17. LEVOTHYROXINE. [Concomitant]
     Active Substance: LEVOTHYROXINE
  18. IMBRUVICA [Suspect]
     Active Substance: IBRUTINIB
     Indication: THERAPY NAIVE
     Route: 048
     Dates: start: 201511, end: 2015
  19. HYDROCODONE BITARTRATE W/PARACETAMOL [Concomitant]
     Active Substance: ACETAMINOPHEN\HYDROCODONE BITARTRATE
  20. GAVILAX [Concomitant]
     Active Substance: POLYETHYLENE GLYCOL 3350
  21. IMBRUVICA [Suspect]
     Active Substance: IBRUTINIB
     Indication: THERAPY NAIVE
     Route: 048
     Dates: start: 20151205
  22. IMBRUVICA [Suspect]
     Active Substance: IBRUTINIB
     Indication: THERAPY NAIVE
     Route: 048
     Dates: start: 2015, end: 2015
  23. FERREX [Concomitant]
  24. HUMALOG [Concomitant]
     Active Substance: INSULIN LISPRO
  25. METOPROLOL. [Concomitant]
     Active Substance: METOPROLOL

REACTIONS (8)
  - Confusional state [Recovering/Resolving]
  - Platelet count decreased [Unknown]
  - Off label use [Unknown]
  - Renal impairment [Unknown]
  - Blood creatinine increased [Recovered/Resolved]
  - Anaemia [Recovering/Resolving]
  - Swelling [Unknown]
  - Incorrect dose administered [Not Recovered/Not Resolved]

NARRATIVE: CASE EVENT DATE: 2015
